FAERS Safety Report 6219283-0 (Version None)
Quarter: 2009Q2

REPORT INFORMATION
  Report Type: 
  Country: None (occurrence: None)
  Receive Date: 20090609
  Receipt Date: 20090526
  Transmission Date: 20091009
  Serious: Yes (Hospitalization, Other)
  Sender: FDA-Public Use
  Company Number: FR-ELI_LILLY_AND_COMPANY-FR200905004879

PATIENT
  Sex: Male

DRUGS (12)
  1. GEMZAR [Suspect]
     Indication: BLADDER CANCER RECURRENT
     Dosage: 5 CURES, UNKNOWN
     Route: 042
     Dates: start: 20071129, end: 20080501
  2. GEMZAR [Suspect]
     Dosage: 2 CURES, UNKNOWN
     Route: 042
     Dates: start: 20081101, end: 20081201
  3. GEMZAR [Suspect]
     Dosage: UNK, UNKNOWN
     Route: 042
     Dates: start: 20081222, end: 20090309
  4. CARBOPLATIN [Concomitant]
     Indication: BLADDER CANCER RECURRENT
     Dosage: 5 CURES, UNKNOWN
     Route: 042
     Dates: start: 20071130, end: 20080501
  5. CARBOPLATIN [Concomitant]
     Dosage: 2 CURES, UNKNOWN
     Route: 042
     Dates: start: 20081101, end: 20081216
  6. AVLOCARDYL [Concomitant]
     Dosage: UNK, UNKNOWN
     Route: 065
  7. TARDYFERON [Concomitant]
     Dosage: UNK, UNKNOWN
     Route: 065
  8. KEPPRA [Concomitant]
     Dosage: UNK, UNKNOWN
     Route: 065
  9. FOSINOPRIL SODIUM AND HYDROCHLOROTHIAZIDE [Concomitant]
     Dosage: UNK, UNKNOWN
     Route: 065
  10. TAHOR [Concomitant]
     Dosage: UNK, UNKNOWN
     Route: 065
  11. EPREX [Concomitant]
     Dosage: UNK, UNKNOWN
     Route: 065
  12. RILMENIDINE [Concomitant]
     Dosage: UNK, UNKNOWN
     Route: 065

REACTIONS (2)
  - DEEP VEIN THROMBOSIS [None]
  - THROMBOCYTOPENIA [None]
